FAERS Safety Report 5119576-4 (Version None)
Quarter: 2006Q4

REPORT INFORMATION
  Report Type: 
  Country: None (occurrence: None)
  Receive Date: 20061003
  Receipt Date: 20060921
  Transmission Date: 20070319
  Serious: Yes (Death)
  Sender: FDA-Public Use
  Company Number: JP-JNJFOC-20060906012

PATIENT
  Sex: Female

DRUGS (4)
  1. LEVOFLOXACIN [Suspect]
     Indication: PYREXIA
     Route: 048
     Dates: start: 20060427
  2. FENAZOX [Concomitant]
     Route: 048
  3. MUCOSTA [Concomitant]
     Route: 065
  4. KETOPROFEN [Concomitant]
     Route: 065

REACTIONS (6)
  - CHEST PAIN [None]
  - DEATH [None]
  - INTERSTITIAL LUNG DISEASE [None]
  - LYMPHADENOPATHY [None]
  - PLATELET COUNT DECREASED [None]
  - PURPURA [None]
